FAERS Safety Report 6712705-8 (Version None)
Quarter: 2010Q2

REPORT INFORMATION
  Report Type: 
  Country: None (occurrence: None)
  Receive Date: 20100505
  Receipt Date: 20100505
  Transmission Date: 20101027
  Serious: Yes (Life-Threatening, Other)
  Sender: FDA-Public Use
  Company Number: None

PATIENT
  Age: 69 Year
  Sex: Female
  Weight: 61.2356 kg

DRUGS (1)
  1. LOSARTAN POTASSIUM AND HYDROCHLOROTHIAZIDE [Suspect]
     Indication: HYPERTENSION
     Dosage: 1/2 TAB AT BED TIME PO
     Route: 048
     Dates: start: 20100417, end: 20100502

REACTIONS (12)
  - ABDOMINAL PAIN [None]
  - ERYTHEMA [None]
  - FLATULENCE [None]
  - HEADACHE [None]
  - HYPERTENSION [None]
  - MUSCLE TWITCHING [None]
  - NASAL CONGESTION [None]
  - PRODUCT SUBSTITUTION ISSUE [None]
  - PRURITUS [None]
  - REACTION TO DRUG EXCIPIENTS [None]
  - SLEEP DISORDER [None]
  - TACHYCARDIA [None]
